FAERS Safety Report 10784428 (Version 1)
Quarter: 2015Q1

REPORT INFORMATION
  Report Type: Spontaneous
  Country: US (occurrence: None)
  Receive Date: 20150209
  Receipt Date: 20150209
  Transmission Date: 20150721
  Serious: No
  Sender: FDA-Public Use
  Company Number: None

PATIENT

DRUGS (2)
  1. MINIVELLE [Suspect]
     Active Substance: ESTRADIOL
     Dosage: ADM ROUTE: ORAL, STRENGTH: 0.05 MG
     Route: 048
  2. MINIVELLE [Suspect]
     Active Substance: ESTRADIOL
     Dosage: STRENGTH: 0.075 MG??

REACTIONS (1)
  - Drug dispensing error [None]
